FAERS Safety Report 14001793 (Version 1)
Quarter: 2017Q3

REPORT INFORMATION
  Report Type: Spontaneous
  Country: US (occurrence: US)
  Receive Date: 20170922
  Receipt Date: 20170922
  Transmission Date: 20171128
  Serious: Yes (Death, Hospitalization)
  Sender: FDA-Public Use
  Company Number: US-JNJFOC-20170705645

PATIENT
  Age: 82 Year
  Sex: Male

DRUGS (3)
  1. XARELTO [Suspect]
     Active Substance: RIVAROXABAN
     Indication: ATRIAL FIBRILLATION
     Dosage: 10, 15 AND 20 MG
     Route: 048
     Dates: start: 20121227, end: 20161019
  2. XARELTO [Suspect]
     Active Substance: RIVAROXABAN
     Indication: THROMBOSIS PROPHYLAXIS
     Dosage: 10, 15 AND 20 MG
     Route: 048
     Dates: start: 20121227, end: 20161019
  3. XARELTO [Suspect]
     Active Substance: RIVAROXABAN
     Indication: CEREBROVASCULAR ACCIDENT PROPHYLAXIS
     Dosage: 10, 15 AND 20 MG
     Route: 048
     Dates: start: 20121227, end: 20161019

REACTIONS (5)
  - Epistaxis [Unknown]
  - Cerebral haematoma [Fatal]
  - Haemorrhagic stroke [Unknown]
  - Brain stem haemorrhage [Fatal]
  - Lower gastrointestinal haemorrhage [Recovering/Resolving]

NARRATIVE: CASE EVENT DATE: 201212
